FAERS Safety Report 6571845-7 (Version None)
Quarter: 2010Q1

REPORT INFORMATION
  Report Type: 
  Country: None (occurrence: None)
  Receive Date: 20100205
  Receipt Date: 20100203
  Transmission Date: 20100710
  Serious: Yes (Hospitalization)
  Sender: FDA-Public Use
  Company Number: JP-SANOFI-AVENTIS-2010SA006228

PATIENT

DRUGS (1)
  1. APIDRA [Suspect]

REACTIONS (1)
  - POLYNEUROPATHY [None]
